FAERS Safety Report 24067665 (Version 1)
Quarter: 2024Q3

REPORT INFORMATION
  Report Type: Spontaneous
  Country: IT (occurrence: IT)
  Receive Date: 20240710
  Receipt Date: 20240710
  Transmission Date: 20241016
  Serious: Yes (Other)
  Sender: RANBAXY
  Company Number: IT-SUN PHARMACEUTICAL INDUSTRIES LTD-2024RR-455900

PATIENT
  Age: 27 Year
  Sex: Female

DRUGS (1)
  1. DEFERASIROX [Suspect]
     Active Substance: DEFERASIROX
     Indication: Iron deficiency
     Dosage: 24 MILLIGRAM/KILOGRAM
     Route: 065

REACTIONS (1)
  - Exposure during pregnancy [Unknown]
